FAERS Safety Report 6501865-X (Version None)
Quarter: 2009Q4

REPORT INFORMATION
  Report Type: 
  Country: None (occurrence: None)
  Receive Date: 20091216
  Receipt Date: 20091202
  Transmission Date: 20100525
  Serious: Yes (Hospitalization)
  Sender: FDA-Public Use
  Company Number: CA-SANOFI-AVENTIS-2009SA006299

PATIENT
  Age: 66 Year
  Sex: Female

DRUGS (2)
  1. DOCETAXEL [Suspect]
     Route: 041
     Dates: start: 20091109, end: 20091109
  2. BLINDED THERAPY [Suspect]
     Route: 042
     Dates: start: 20091109, end: 20091109

REACTIONS (4)
  - DIARRHOEA [None]
  - FALL [None]
  - GENERAL PHYSICAL HEALTH DETERIORATION [None]
  - HYPOKALAEMIA [None]
